FAERS Safety Report 5107008-1 (Version None)
Quarter: 2006Q3

REPORT INFORMATION
  Report Type: 
  Country: None (occurrence: None)
  Receive Date: 20060913
  Receipt Date: 20060823
  Transmission Date: 20061208
  Serious: Yes (Death, Hospitalization, Other)
  Sender: FDA-Public Use
  Company Number: USA040670603

PATIENT
  Age: 83 Year
  Sex: Female
  Weight: 62.7 kg

DRUGS (6)
  1. FORTEO [Suspect]
     Indication: OSTEOPOROSIS
     Dosage: DAILY (1/D)
     Dates: start: 20040201, end: 20060201
  2. CARDIZEM [Concomitant]
  3. SYNTHROID [Concomitant]
  4. PRILOSEC [Concomitant]
  5. FOLIC ACID [Concomitant]
  6. FORTEO [Concomitant]

REACTIONS (3)
  - BRONCHITIS ACUTE [None]
  - CARDIAC FAILURE CONGESTIVE [None]
  - PHARMACEUTICAL PRODUCT COMPLAINT [None]
